FAERS Safety Report 25395887 (Version 1)
Quarter: 2025Q2

REPORT INFORMATION
  Report Type: Spontaneous
  Country: JP (occurrence: JP)
  Receive Date: 20250604
  Receipt Date: 20250604
  Transmission Date: 20250716
  Serious: Yes (Other)
  Sender: Alora Pharma
  Company Number: JP-VERTICAL PHARMACEUTICALS-2025ALO02251

PATIENT
  Age: 34 Year
  Sex: Female

DRUGS (2)
  1. ESTRADIOL [Suspect]
     Active Substance: ESTRADIOL
     Indication: Controlled ovarian stimulation
  2. HEPARIN [Concomitant]
     Active Substance: HEPARIN SODIUM

REACTIONS (5)
  - Premature separation of placenta [Unknown]
  - Premature rupture of membranes [Unknown]
  - Caesarean section [Unknown]
  - Drug exposure before pregnancy [Unknown]
  - Contraindicated product administered [Unknown]
